FAERS Safety Report 8814244 (Version 1)
Quarter: 2012Q4

REPORT INFORMATION
  Report Type: Spontaneous
  Country: ES (occurrence: None)
  Receive Date: 20120925
  Receipt Date: 20120925
  Transmission Date: 20130627
  Serious: Yes (Other)
  Sender: FDA-Public Use
  Company Number: ES-1194170

PATIENT
  Age: 33 Year
  Sex: Female

DRUGS (1)
  1. TOBRADEX [Suspect]
     Indication: CONJUNCTIVITIS
     Route: 047
     Dates: start: 20120504, end: 20120505

REACTIONS (3)
  - Conjunctivitis [None]
  - Condition aggravated [None]
  - Eyelid oedema [None]
